FAERS Safety Report 7000587-9 (Version None)
Quarter: 2010Q3

REPORT INFORMATION
  Report Type: 
  Country: None (occurrence: None)
  Receive Date: 20100920
  Receipt Date: 20070604
  Transmission Date: 20110219
  Serious: Yes (Hospitalization, Other)
  Sender: FDA-Public Use
  Company Number: US-ASTRAZENECA-2006UW21881

PATIENT
  Age: 17676 Day
  Sex: Female
  Weight: 62.1 kg

DRUGS (6)
  1. SEROQUEL [Suspect]
     Indication: BIPOLAR I DISORDER
     Dosage: 50-100 MG
     Route: 048
     Dates: start: 20041031
  2. SEROQUEL [Suspect]
     Dosage: 200 MG
     Route: 048
     Dates: start: 20060801
  3. DEPAKOTE [Concomitant]
     Dosage: 500 MG
     Dates: start: 20050901
  4. EFFEXOR XR [Concomitant]
     Route: 048
     Dates: start: 20050402
  5. NABUMETONE [Concomitant]
     Route: 048
  6. CLONAZEPAM [Concomitant]
     Route: 048
     Dates: start: 20050427

REACTIONS (2)
  - PANCREATITIS [None]
  - PANCREATITIS ACUTE [None]
